FAERS Safety Report 9840217 (Version 1)
Quarter: 2013Q4

REPORT INFORMATION
  Report Type: Spontaneous
  Country: US (occurrence: None)
  Receive Date: 20131211
  Receipt Date: 20131211
  Transmission Date: 20140711
  Serious: No
  Sender: FDA-Public Use
  Company Number: ALL1-2012-02538

PATIENT
  Age: 64 Year
  Sex: Female
  Weight: 64.9 kg

DRUGS (5)
  1. FIRAZYR [Suspect]
     Indication: HEREDITARY ANGIOEDEMA
     Dosage: 30 MG, AS REQ^D, SUBCUTANEOUS
     Route: 058
     Dates: start: 20120517
  2. VITAMINS NOS (VITAMINS NOS) TABLET [Concomitant]
  3. CALCIUM (CALCIUM) TABLET [Concomitant]
  4. BIOTIN (BIOTIN) TABLET [Concomitant]
  5. ZINC (ZINC) TABLET [Concomitant]

REACTIONS (5)
  - Injection site pruritus [None]
  - Injection site warmth [None]
  - Injection site oedema [None]
  - Injection site erythema [None]
  - Product quality issue [None]
